FAERS Safety Report 10314871 (Version 2)
Quarter: 2014Q3

REPORT INFORMATION
  Report Type: Spontaneous
  Country: US (occurrence: US)
  Receive Date: 20140718
  Receipt Date: 20140718
  Transmission Date: 20150326
  Serious: Yes (Other)
  Sender: FDA-Public Use
  Company Number: US-009507513-2010SP062533

PATIENT
  Sex: Female
  Weight: 104.31 kg

DRUGS (1)
  1. NUVARING [Suspect]
     Active Substance: ETHINYL ESTRADIOL\ETONOGESTREL
     Indication: CONTRACEPTION
     Route: 067
     Dates: start: 200810, end: 200811

REACTIONS (3)
  - Iron deficiency [Unknown]
  - Deep vein thrombosis [Unknown]
  - Contusion [Unknown]

NARRATIVE: CASE EVENT DATE: 20081127
